FAERS Safety Report 6933490-0 (Version None)
Quarter: 2010Q3

REPORT INFORMATION
  Report Type: 
  Country: None (occurrence: None)
  Receive Date: 20100820
  Receipt Date: 20100809
  Transmission Date: 20110219
  Serious: Yes (Other)
  Sender: FDA-Public Use
  Company Number: US-JNJFOC-20100500909

PATIENT
  Sex: Male
  Weight: 73.94 kg

DRUGS (6)
  1. REMICADE [Suspect]
     Indication: CROHN'S DISEASE
     Route: 042
  2. REMICADE [Suspect]
     Dosage: A TOTAL OF 30 INFUSIONS
     Route: 042
  3. IMURAN [Concomitant]
  4. PREDNISONE [Concomitant]
  5. AZATHIOPRINE [Concomitant]
     Route: 048
  6. PENTASA [Concomitant]
     Route: 048

REACTIONS (3)
  - ANAPLASTIC LARGE CELL LYMPHOMA T- AND NULL-CELL TYPES [None]
  - CROHN'S DISEASE [None]
  - RED MAN SYNDROME [None]
